FAERS Safety Report 19569149 (Version 1)
Quarter: 2021Q3

REPORT INFORMATION
  Report Type: Spontaneous
  Country: US (occurrence: US)
  Receive Date: 20210716
  Receipt Date: 20210716
  Transmission Date: 20211014
  Serious: Yes (Other)
  Sender: FDA-Public Use
  Company Number: US-SA-2021SA226752

PATIENT
  Sex: Male

DRUGS (1)
  1. LANTUS [Suspect]
     Active Substance: INSULIN GLARGINE
     Indication: TYPE 2 DIABETES MELLITUS
     Dosage: 70 IU, QD (ONCE DAILY)
     Route: 065

REACTIONS (12)
  - Dyspnoea [Unknown]
  - Hyperhidrosis [Unknown]
  - Peripheral swelling [Unknown]
  - Dizziness [Unknown]
  - Vision blurred [Unknown]
  - Joint swelling [Unknown]
  - Blood glucose increased [Unknown]
  - Cardiac ventriculogram right abnormal [Unknown]
  - Muscle spasms [Unknown]
  - Hypertension [Unknown]
  - Brain neoplasm [Unknown]
  - Weight increased [Unknown]
